FAERS Safety Report 22211267 (Version 1)
Quarter: 2023Q2

REPORT INFORMATION
  Report Type: Report from Study
  Country: MX (occurrence: MX)
  Receive Date: 20230414
  Receipt Date: 20230414
  Transmission Date: 20230721
  Serious: Yes (Other)
  Sender: FDA-Public Use
  Company Number: MX-AstraZeneca-2022A317636

PATIENT
  Age: 216 Day
  Sex: Male
  Weight: 6 kg

DRUGS (6)
  1. SYNAGIS [Suspect]
     Active Substance: PALIVIZUMAB
     Indication: Bronchopulmonary dysplasia
     Dosage: HE HAD A WEIGHT OF 5.1 KG?MONTHLY
     Route: 030
     Dates: end: 20220812
  2. SYNAGIS [Suspect]
     Active Substance: PALIVIZUMAB
     Dosage: HAD A WEIGHT OF 6.12 KG?MONTHLY
     Route: 030
     Dates: start: 20220909, end: 20220909
  3. SYNAGIS [Suspect]
     Active Substance: PALIVIZUMAB
     Dosage: HAD A WEIGHT OF 6.12 KG?MONTHLY
     Route: 030
     Dates: start: 20221007, end: 20221007
  4. BUDESONIDE [Suspect]
     Active Substance: BUDESONIDE
     Indication: Bronchopulmonary dysplasia
     Dosage: WITH A SPACER 2 TIMES A DAY?1.0DF UNKNOWN
     Route: 055
     Dates: end: 202302
  5. BUDESONIDE [Suspect]
     Active Substance: BUDESONIDE
     Dosage: 1.0DF UNKNOWN
     Route: 055
     Dates: start: 202303, end: 202303
  6. LEVETIRACETAM [Concomitant]
     Active Substance: LEVETIRACETAM
     Indication: Product used for unknown indication
     Dosage: LOW DOSE
     Dates: start: 20220421, end: 202211

REACTIONS (9)
  - Rhinorrhoea [Recovered/Resolved]
  - Pyrexia [Recovered/Resolved]
  - Cough [Recovered/Resolved]
  - Gastritis [Recovering/Resolving]
  - Pharyngitis [Recovered/Resolved]
  - Conductive deafness [Recovered/Resolved]
  - Pharyngitis [Recovered/Resolved]
  - Discomfort [Recovered/Resolved]
  - Crying [Recovered/Resolved]

NARRATIVE: CASE EVENT DATE: 20220206
